FAERS Safety Report 8452838-1 (Version None)
Quarter: 2012Q2

REPORT INFORMATION
  Report Type: 
  Country: None (occurrence: None)
  Receive Date: 20120620
  Receipt Date: 20120511
  Transmission Date: 20120825
  Serious: No
  Sender: FDA-Public Use
  Company Number: US-VERTEX PHARMACEUTICALS INC.-AE-2012-006203

PATIENT
  Sex: Female
  Weight: 63.56 kg

DRUGS (4)
  1. PEGASYS [Concomitant]
     Indication: HEPATITIS C
     Route: 058
     Dates: start: 20120407
  2. INCIVEK [Suspect]
     Indication: HEPATITIS C
     Route: 048
     Dates: start: 20120407
  3. RIBAVIRIN [Concomitant]
     Indication: HEPATITIS C
     Route: 048
     Dates: start: 20120407
  4. RIBAVIRIN [Concomitant]

REACTIONS (11)
  - DYSPNOEA [None]
  - DIARRHOEA [None]
  - VOMITING [None]
  - ASTHENIA [None]
  - NASAL ABSCESS [None]
  - FATIGUE [None]
  - HAEMORRHOIDAL HAEMORRHAGE [None]
  - INFLUENZA LIKE ILLNESS [None]
  - NAUSEA [None]
  - COUGH [None]
  - ANAEMIA [None]
